FAERS Safety Report 8050877-6 (Version None)
Quarter: 2012Q1

REPORT INFORMATION
  Report Type: 
  Country: None (occurrence: None)
  Receive Date: 20120117
  Receipt Date: 20120110
  Transmission Date: 20120608
  Serious: Yes (Life-Threatening, Hospitalization, Other)
  Sender: FDA-Public Use
  Company Number: PHHY2010DE87132

PATIENT
  Sex: Male
  Weight: 85 kg

DRUGS (22)
  1. RASILEZ [Suspect]
     Dosage: 300 MG, QD
     Route: 048
     Dates: start: 20091210
  2. RULID [Suspect]
     Indication: PNEUMONIA
     Dosage: 300 MG, QD
     Route: 048
     Dates: start: 20110412, end: 20110419
  3. LASIX [Concomitant]
     Indication: CARDIAC FAILURE
     Dosage: 80 MG, QD
     Route: 048
     Dates: start: 20101122
  4. LERCANIDIPINE [Concomitant]
     Indication: HYPERTENSION
     Dosage: 20 MG, QD
     Route: 048
     Dates: start: 20101201
  5. RASILEZ [Suspect]
     Indication: HYPERTENSION
     Dosage: 150 MG
     Route: 048
     Dates: start: 20090213
  6. ASPIRIN [Concomitant]
     Indication: CORONARY ARTERY DISEASE
     Dosage: 100 MG
     Route: 048
     Dates: start: 20100914
  7. CALCIUM ANTAGONIST [Concomitant]
     Dosage: UNK UKN, UNK
  8. EFFIENT [Concomitant]
     Indication: CORONARY ARTERY DISEASE
     Dosage: 10 MG, QD
     Route: 048
     Dates: start: 20110512
  9. ANTIDEPRESSANTS [Concomitant]
  10. CARVEDILOL [Concomitant]
     Indication: CORONARY ARTERY DISEASE
  11. DIGITOXIN TAB [Concomitant]
     Indication: CARDIOMYOPATHY
     Dosage: 0.1 MG
     Route: 048
     Dates: start: 20070111
  12. SPIRO COMP FORTE [Concomitant]
     Indication: CARDIOMYOPATHY
     Route: 048
     Dates: start: 20060101
  13. ISOSORBIDE DINITRATE [Concomitant]
     Indication: CARDIOMYOPATHY
     Dosage: 60 MG
     Route: 048
     Dates: start: 20081201
  14. OLMESARTAN MEDOXOMIL [Concomitant]
     Indication: HYPERTENSION
     Dosage: 40 MG, QD
     Route: 048
     Dates: start: 20070412
  15. OLMESARTAN MEDOXOMIL [Concomitant]
     Indication: HYPERTENSION
     Dosage: 40 MG
     Route: 048
     Dates: start: 20061101
  16. VASODILATATOR [Concomitant]
     Dosage: UNK UKN, UNK
  17. HMG COA REDUCTASE INHIBITORS [Concomitant]
     Dosage: UNK UKN, UNK
  18. CARVEDILOL [Concomitant]
     Indication: HYPERTENSION
     Dosage: 25 MG
     Route: 048
     Dates: start: 20070207
  19. ALLOPURINOL [Concomitant]
     Indication: HYPERURICAEMIA
     Dosage: 150 MG
     Route: 048
     Dates: start: 20070619
  20. NOVORAPID [Concomitant]
     Indication: DIABETES MELLITUS
     Dosage: UNK UKN, UNK
     Route: 058
     Dates: start: 20080801
  21. LEVEMIR [Concomitant]
     Indication: DIABETES MELLITUS
     Dosage: 24 IU, UNK
     Route: 058
     Dates: start: 20100701
  22. MOXONIDINE [Concomitant]
     Indication: HYPERTENSION
     Dosage: 0.3 MG, QD
     Route: 048
     Dates: start: 20110314

REACTIONS (3)
  - BLOOD PRESSURE DECREASED [None]
  - PNEUMONIA [None]
  - ACUTE MYOCARDIAL INFARCTION [None]
